FAERS Safety Report 22230777 (Version 2)
Quarter: 2023Q2

REPORT INFORMATION
  Report Type: Spontaneous
  Country: CN (occurrence: CN)
  Receive Date: 20230420
  Receipt Date: 20230427
  Transmission Date: 20230722
  Serious: Yes (Other)
  Sender: FDA-Public Use
  Company Number: CN-MTPC-MTPC2023-0009927

PATIENT
  Age: 54 Year
  Sex: Male

DRUGS (6)
  1. EDARAVONE [Suspect]
     Active Substance: EDARAVONE
     Indication: Amyotrophic lateral sclerosis
     Route: 065
  2. METHYLCOBALAMIN [Concomitant]
     Active Substance: METHYLCOBALAMIN
     Indication: Amyotrophic lateral sclerosis
     Route: 065
  3. IDEBENONE [Concomitant]
     Active Substance: IDEBENONE
     Indication: Amyotrophic lateral sclerosis
     Route: 065
  4. COENZYME Q10 [Concomitant]
     Active Substance: DIETARY SUPPLEMENT\UBIDECARENONE
     Indication: Amyotrophic lateral sclerosis
     Route: 065
  5. CITICOLINE SODIUM [Concomitant]
     Active Substance: CITICOLINE SODIUM
     Indication: Amyotrophic lateral sclerosis
     Route: 065
  6. VITAMIN E [Concomitant]
     Active Substance: .ALPHA.-TOCOPHEROL
     Indication: Amyotrophic lateral sclerosis
     Route: 065

REACTIONS (1)
  - Neutropenia [Recovering/Resolving]
